FAERS Safety Report 25592506 (Version 1)
Quarter: 2025Q3

REPORT INFORMATION
  Report Type: Other
  Country: US (occurrence: US)
  Receive Date: 20250722
  Receipt Date: 20250722
  Transmission Date: 20251020
  Serious: No
  Sender: NOVA LABORATORIES LIMITED
  Company Number: US-Nova Laboratories Limited-2180983

PATIENT
  Age: 33 Year
  Sex: Female

DRUGS (3)
  1. XROMI [Suspect]
     Active Substance: HYDROXYUREA
  2. ASPIRIN [Suspect]
     Active Substance: ASPIRIN
  3. APIXABAN [Suspect]
     Active Substance: APIXABAN

REACTIONS (2)
  - Drug effective for unapproved indication [Unknown]
  - Off label use [Unknown]
